FAERS Safety Report 5187889-6 (Version None)
Quarter: 2006Q4

REPORT INFORMATION
  Report Type: 
  Country: None (occurrence: None)
  Receive Date: 20061221
  Receipt Date: 20061214
  Transmission Date: 20070319
  Serious: Yes (Hospitalization)
  Sender: FDA-Public Use
  Company Number: 2006AC02332

PATIENT
  Sex: Male

DRUGS (7)
  1. CRESTOR [Suspect]
     Indication: HYPERCHOLESTEROLAEMIA
     Route: 048
     Dates: start: 20061010
  2. ALCOHOL [Suspect]
     Route: 048
     Dates: start: 20061101
  3. ALCOHOL [Suspect]
     Route: 048
     Dates: start: 20061210
  4. COZAAR [Concomitant]
  5. ACENOCOUMAROL [Concomitant]
  6. BETAHISTINE [Concomitant]
  7. OMEPRAZOLE [Concomitant]

REACTIONS (3)
  - BLOOD ALCOHOL INCREASED [None]
  - CONVULSION [None]
  - LOSS OF CONSCIOUSNESS [None]
